FAERS Safety Report 6177792-7 (Version None)
Quarter: 2009Q2

REPORT INFORMATION
  Report Type: 
  Country: None (occurrence: None)
  Receive Date: 20090501
  Receipt Date: 20090501
  Transmission Date: 20091009
  Serious: Yes (Death)
  Sender: FDA-Public Use
  Company Number: None

PATIENT
  Age: 65 Year
  Sex: Male
  Weight: 97.98 kg

DRUGS (2)
  1. PACLITAXEL [Suspect]
     Indication: ADENOSQUAMOUS CELL LUNG CANCER STAGE IV
     Dosage: 240 MG OTHER IV
     Route: 042
     Dates: start: 20090309, end: 20090309
  2. CARBOPLATIN [Suspect]
     Dosage: 450 MG OTHER IV
     Route: 042
     Dates: start: 20090309, end: 20090309

REACTIONS (8)
  - ACUTE HEPATIC FAILURE [None]
  - CONFUSIONAL STATE [None]
  - DEPRESSED LEVEL OF CONSCIOUSNESS [None]
  - DIARRHOEA HAEMORRHAGIC [None]
  - FEBRILE NEUTROPENIA [None]
  - HYPOTENSION [None]
  - PARAESTHESIA [None]
  - SEPSIS [None]
